FAERS Safety Report 8483405-1 (Version None)
Quarter: 2012Q3

REPORT INFORMATION
  Report Type: 
  Country: None (occurrence: None)
  Receive Date: 20120702
  Receipt Date: 20120702
  Transmission Date: 20120928
  Serious: Yes (Other)
  Sender: FDA-Public Use
  Company Number: US-JNJFOC-20120603188

PATIENT
  Sex: Female
  Weight: 55.79 kg

DRUGS (4)
  1. XARELTO [Suspect]
     Route: 048
     Dates: start: 20120501, end: 20120501
  2. XARELTO [Suspect]
     Indication: CEREBROVASCULAR ACCIDENT PROPHYLAXIS
     Route: 048
     Dates: start: 20120501, end: 20120501
  3. XARELTO [Suspect]
     Route: 048
     Dates: start: 20120501
  4. XARELTO [Suspect]
     Indication: ATRIAL FIBRILLATION
     Route: 048
     Dates: start: 20120501

REACTIONS (3)
  - EYE SWELLING [None]
  - PRURITUS [None]
  - WRONG TECHNIQUE IN DRUG USAGE PROCESS [None]
